FAERS Safety Report 12072674 (Version 1)
Quarter: 2016Q1

REPORT INFORMATION
  Report Type: Spontaneous
  Country: GB (occurrence: GB)
  Receive Date: 20160212
  Receipt Date: 20160212
  Transmission Date: 20160526
  Serious: Yes (Hospitalization)
  Sender: FDA-Public Use
  Company Number: GB-TEVA-632099ACC

PATIENT
  Age: 76 Year
  Sex: Female

DRUGS (6)
  1. FOLIC ACID. [Concomitant]
     Active Substance: FOLIC ACID
     Dosage: 5 MILLIGRAM DAILY; IN THE MORNING
     Route: 048
  2. CLARITHROMYCIN. [Suspect]
     Active Substance: CLARITHROMYCIN
     Indication: INFECTED SKIN ULCER
     Dosage: 500 MILLIGRAM DAILY;
     Route: 048
  3. PROMETHAZINE HYDROCHLORIDE. [Concomitant]
     Active Substance: PROMETHAZINE HYDROCHLORIDE
     Dosage: AT NIGHT
     Route: 048
  4. METHOTREXATE [Suspect]
     Active Substance: METHOTREXATE
     Indication: RHEUMATOID ARTHRITIS
     Route: 048
  5. TRAMADOL. [Concomitant]
     Active Substance: TRAMADOL
     Dosage: 50-100MG FOUR TIMES A DAY
     Route: 048
  6. NAPROXEN. [Suspect]
     Active Substance: NAPROXEN
     Indication: RHEUMATOID ARTHRITIS
     Dosage: 1000 MILLIGRAM DAILY;
     Route: 048

REACTIONS (13)
  - Gastritis [Recovered/Resolved]
  - Mouth ulceration [Recovered/Resolved]
  - Toxicity to various agents [Unknown]
  - Blood disorder [Recovering/Resolving]
  - Rash [Recovered/Resolved]
  - Pyrexia [Unknown]
  - Haemorrhoids [Unknown]
  - Hypokalaemia [Unknown]
  - Pain [Recovered/Resolved]
  - Diarrhoea [Unknown]
  - Anal haemorrhage [Unknown]
  - Haematochezia [Unknown]
  - Pancytopenia [Recovered/Resolved]

NARRATIVE: CASE EVENT DATE: 20160111
